FAERS Safety Report 13458323 (Version 3)
Quarter: 2017Q3

REPORT INFORMATION
  Report Type: Spontaneous
  Country: IT (occurrence: IT)
  Receive Date: 20170419
  Receipt Date: 20170816
  Transmission Date: 20171127
  Serious: Yes (Other)
  Sender: FDA-Public Use
  Company Number: IT-ACCORD-050366

PATIENT
  Age: 24 Year
  Sex: Male
  Weight: 79 kg

DRUGS (2)
  1. CISPLATIN. [Suspect]
     Active Substance: CISPLATIN
     Indication: TESTIS CANCER
     Dosage: THE PATIENT UNDERWENT DAY 3 AND DAY 5 ETOPOSIDE+ CISPLATIN (DAY 1-2-3-4-5) CYCLE 1
     Route: 042
     Dates: start: 20170213
  2. ETOPOSIDE. [Suspect]
     Active Substance: ETOPOSIDE
     Indication: TESTIS CANCER
     Dosage: THE PATIENT UNDERWENT DAY 3 AND DAY 5 ETOPOSIDE+ CISPLATIN (DAY 1-2-3-4-5) CYCLE 1
     Route: 042
     Dates: start: 20170213

REACTIONS (4)
  - Diarrhoea [Recovering/Resolving]
  - Hypoacusis [Unknown]
  - Abdominal pain [Not Recovered/Not Resolved]
  - Tinnitus [Unknown]

NARRATIVE: CASE EVENT DATE: 20170215
